FAERS Safety Report 7323685-9 (Version None)
Quarter: 2011Q1

REPORT INFORMATION
  Report Type: 
  Country: None (occurrence: None)
  Receive Date: 20110301
  Receipt Date: 20100726
  Transmission Date: 20110831
  Serious: Yes (Other)
  Sender: FDA-Public Use
  Company Number: US-BAYER-201013267NA

PATIENT
  Sex: Female
  Weight: 49.091 kg

DRUGS (7)
  1. YASMIN [Suspect]
     Indication: PRODUCT USED FOR UNKNOWN INDICATION
     Route: 048
     Dates: start: 20000101
  2. TRETINOIN [Concomitant]
     Route: 061
  3. DOXYCYCLINE [Concomitant]
     Dosage: 100 MG, TID
     Route: 048
  4. YAZ [Suspect]
     Indication: PRODUCT USED FOR UNKNOWN INDICATION
     Route: 048
     Dates: start: 20000101
  5. CITALOPRAM HYDROBROMIDE [Concomitant]
     Dosage: 20 MG/24HR, UNK
     Route: 048
  6. CLINDAMYCIN PHOSPHATE [Concomitant]
     Route: 061
  7. MINOCYCLINE HCL [Concomitant]
     Dosage: 90 MG, DAILY
     Route: 048

REACTIONS (1)
  - GALLBLADDER DISORDER [None]
